FAERS Safety Report 17856349 (Version 6)
Quarter: 2020Q4

REPORT INFORMATION
  Report Type: Report from Study
  Country: US (occurrence: US)
  Receive Date: 20200603
  Receipt Date: 20201222
  Transmission Date: 20210113
  Serious: Yes (Other)
  Sender: FDA-Public Use
  Company Number: NVSC2020US153288

PATIENT
  Sex: Female
  Weight: 86.17 kg

DRUGS (6)
  1. XARELTO [Concomitant]
     Active Substance: RIVAROXABAN
     Indication: PRODUCT USED FOR UNKNOWN INDICATION
     Dosage: UNK
     Route: 065
  2. TREPROSTINIL. [Suspect]
     Active Substance: TREPROSTINIL
     Dosage: UNK (STRENGTH: 2.5 MG/ML)
     Route: 065
  3. TADALAFIL. [Concomitant]
     Active Substance: TADALAFIL
     Indication: PRODUCT USED FOR UNKNOWN INDICATION
     Dosage: UNK
     Route: 065
  4. TREPROSTINIL. [Suspect]
     Active Substance: TREPROSTINIL
     Indication: PULMONARY ARTERIAL HYPERTENSION
     Dosage: 12 NG/KG/MIN
     Route: 042
     Dates: start: 20200526
  5. AMBRISENTAN [Concomitant]
     Active Substance: AMBRISENTAN
     Indication: PRODUCT USED FOR UNKNOWN INDICATION
     Dosage: UNK
     Route: 065
  6. TREPROSTINIL. [Suspect]
     Active Substance: TREPROSTINIL
     Dosage: UNK
     Route: 065

REACTIONS (8)
  - Device related infection [Unknown]
  - Infusion site pain [Unknown]
  - Chest pain [Recovered/Resolved]
  - Flushing [Recovered/Resolved]
  - Headache [Not Recovered/Not Resolved]
  - Pain in jaw [Unknown]
  - Blood potassium decreased [Unknown]
  - Rash [Unknown]
